FAERS Safety Report 7764298-4 (Version None)
Quarter: 2011Q3

REPORT INFORMATION
  Report Type: 
  Country: None (occurrence: None)
  Receive Date: 20110921
  Receipt Date: 20110912
  Transmission Date: 20111222
  Serious: Yes (Hospitalization)
  Sender: FDA-Public Use
  Company Number: JP-BAYER-2011-021492

PATIENT
  Age: 59 Year
  Sex: Male

DRUGS (3)
  1. NEXAVAR [Suspect]
     Indication: HEPATIC NEOPLASM MALIGNANT
     Dosage: 400 MG, QD
     Route: 048
     Dates: start: 20091201, end: 20110215
  2. NEXAVAR [Suspect]
     Dosage: 200 MG, QD
     Dates: start: 20110609
  3. NEXAVAR [Suspect]
     Dosage: 200 MG, QD
     Route: 048
     Dates: start: 20110216, end: 20110415

REACTIONS (6)
  - WEIGHT DECREASED [None]
  - OESOPHAGEAL VARICES HAEMORRHAGE [None]
  - DIARRHOEA [None]
  - MALAISE [None]
  - OCULAR ICTERUS [None]
  - HYPERTENSION [None]
